FAERS Safety Report 16348290 (Version 1)
Quarter: 2019Q2

REPORT INFORMATION
  Report Type: Spontaneous
  Country: US (occurrence: US)
  Receive Date: 20190523
  Receipt Date: 20190523
  Transmission Date: 20190711
  Serious: No
  Sender: FDA-Public Use
  Company Number: US-BAYER-2019-101332

PATIENT
  Age: 68 Year
  Sex: Female
  Weight: 82 kg

DRUGS (8)
  1. ALEVE PM [Suspect]
     Active Substance: DIPHENHYDRAMINE HYDROCHLORIDE\NAPROXEN SODIUM
     Indication: PAIN
     Dosage: UNK
  2. ADVIL LIQUI-GELS [Suspect]
     Active Substance: IBUPROFEN
     Indication: FIBROMYALGIA
     Dosage: 200 MG
     Route: 048
     Dates: start: 2019
  3. DIPHENHYDRAMINE;IBUPROFEN [Suspect]
     Active Substance: DIPHENHYDRAMINE\IBUPROFEN
     Indication: PAIN
     Dosage: 200 MG
     Route: 048
     Dates: start: 2019
  4. PROZAC [Concomitant]
     Active Substance: FLUOXETINE HYDROCHLORIDE
     Indication: DEPRESSION
     Dosage: 40 MG
  5. BAYER LOW DOSE [Suspect]
     Active Substance: ASPIRIN
     Dosage: 81 MG, QD
  6. LORAZEPAM. [Concomitant]
     Active Substance: LORAZEPAM
     Dosage: 1 MG, TID
     Route: 048
  7. ADVIL LIQUI-GELS [Suspect]
     Active Substance: IBUPROFEN
     Indication: FIBROMYALGIA
     Dosage: UNK
     Dates: start: 2015
  8. DIPHENHYDRAMINE;IBUPROFEN [Suspect]
     Active Substance: DIPHENHYDRAMINE\IBUPROFEN
     Indication: SLEEP DISORDER

REACTIONS (1)
  - Drug ineffective [None]
